FAERS Safety Report 7288640 (Version 3)
Quarter: 2013Q3

REPORT INFORMATION
  Report Type: Report from Study
  Country: NL (occurrence: NL)
  Receive Date: 20100222
  Receipt Date: 20130824
  Transmission Date: 20140515
  Serious: Yes (Hospitalization)
  Sender: FDA-Public Use
  Company Number: NL-ROCHE-684785

PATIENT
  Age: 56 Year
  Sex: 0
  Weight: 66.6 kg

DRUGS (5)
  1. CAPECITABINE [Suspect]
     Indication: GASTRIC CANCER
     Dosage: INTERRUPTED
     Route: 065
     Dates: start: 20100203, end: 20100208
  2. EPIRUBICIN [Suspect]
     Indication: GASTRIC CANCER
     Dosage: INTURRUPTED
     Route: 065
     Dates: start: 20100203, end: 20100208
  3. CISPLATIN [Suspect]
     Indication: GASTRIC CANCER
     Dosage: INTURRPTED
     Route: 065
     Dates: start: 20100203, end: 20100208
  4. OMEPRAZOLE [Concomitant]
     Route: 048
  5. POTASSIUM CHLORIDE [Concomitant]
     Route: 048

REACTIONS (4)
  - Nausea [Recovered/Resolved with Sequelae]
  - Vomiting [Recovered/Resolved with Sequelae]
  - Hypokalaemia [Recovered/Resolved with Sequelae]
  - Metabolic alkalosis [Recovered/Resolved with Sequelae]
